FAERS Safety Report 25025535 (Version 1)
Quarter: 2025Q1

REPORT INFORMATION
  Report Type: Spontaneous
  Country: JP (occurrence: JP)
  Receive Date: 20250228
  Receipt Date: 20250228
  Transmission Date: 20250409
  Serious: Yes (Other)
  Sender: ABBVIE
  Company Number: JP-ABBVIE-6151297

PATIENT
  Age: 56 Year
  Sex: Male

DRUGS (1)
  1. RINVOQ [Suspect]
     Active Substance: UPADACITINIB
     Indication: Rheumatoid arthritis
     Route: 048
     Dates: start: 20241210, end: 20250213

REACTIONS (5)
  - Neoplasm malignant [Unknown]
  - Bone pain [Unknown]
  - Liver function test abnormal [Unknown]
  - Carcinoembryonic antigen increased [Unknown]
  - Hepatic pain [Unknown]

NARRATIVE: CASE EVENT DATE: 20250114
